FAERS Safety Report 12062764 (Version 1)
Quarter: 2016Q1

REPORT INFORMATION
  Report Type: Spontaneous
  Country: AU (occurrence: AU)
  Receive Date: 20160210
  Receipt Date: 20160210
  Transmission Date: 20160526
  Serious: Yes (Other)
  Sender: FDA-Public Use
  Company Number: AU-SA-2016SA022530

PATIENT
  Sex: Female

DRUGS (2)
  1. LEMTRADA [Suspect]
     Active Substance: ALEMTUZUMAB
     Indication: MULTIPLE SCLEROSIS
     Dosage: SECOND COURSE
     Route: 041
     Dates: start: 2012
  2. LEMTRADA [Suspect]
     Active Substance: ALEMTUZUMAB
     Indication: MULTIPLE SCLEROSIS
     Dosage: FIRST COURSE
     Route: 041
     Dates: start: 2011

REACTIONS (5)
  - Off label use [Unknown]
  - Blood creatinine increased [Unknown]
  - Breast cancer [Unknown]
  - Breast mass [Unknown]
  - Albuminuria [Unknown]
